FAERS Safety Report 9280590 (Version 1)
Quarter: 2013Q2

REPORT INFORMATION
  Report Type: Spontaneous
  Country: US (occurrence: None)
  Receive Date: 20130507
  Receipt Date: 20130507
  Transmission Date: 20140414
  Serious: Yes (Hospitalization)
  Sender: FDA-Public Use
  Company Number: None

PATIENT
  Age: 30 Year
  Sex: Male
  Weight: 104.05 kg

DRUGS (4)
  1. ALFA 2 INTERFERON 2B (INTRON-A) [Suspect]
     Dates: end: 20130429
  2. ATIVAN [Concomitant]
  3. EFFEXOR [Concomitant]
     Indication: DEPRESSION
  4. EFFEXOR [Concomitant]
     Indication: ANXIETY

REACTIONS (5)
  - Abnormal behaviour [None]
  - Urinary incontinence [None]
  - Faecal incontinence [None]
  - Somnolence [None]
  - Alcohol use [None]
